FAERS Safety Report 16260372 (Version 1)
Quarter: 2019Q2

REPORT INFORMATION
  Report Type: Report from Study
  Country: US (occurrence: US)
  Receive Date: 20190501
  Receipt Date: 20190501
  Transmission Date: 20190711
  Serious: Yes (Hospitalization)
  Sender: FDA-Public Use
  Company Number: US-ROCHE-2306562

PATIENT
  Age: 54 Year
  Sex: Female
  Weight: 71.8 kg

DRUGS (2)
  1. COBIMETINIB. [Suspect]
     Active Substance: COBIMETINIB
     Indication: CHOLANGIOCARCINOMA
     Route: 048
     Dates: start: 20180726, end: 20180802
  2. ATEZOLIZUMAB. [Suspect]
     Active Substance: ATEZOLIZUMAB
     Indication: CHOLANGIOCARCINOMA
     Dosage: ON DAYS 1 AND 15
     Route: 041
     Dates: start: 20180726, end: 20180726

REACTIONS (1)
  - Colitis [Unknown]

NARRATIVE: CASE EVENT DATE: 20180803
